FAERS Safety Report 10031222 (Version 1)
Quarter: 2014Q1

REPORT INFORMATION
  Report Type: Spontaneous
  Country: US (occurrence: US)
  Receive Date: 20140324
  Receipt Date: 20140324
  Transmission Date: 20141002
  Serious: No
  Sender: FDA-Public Use
  Company Number: US-009507513-1403USA009372

PATIENT
  Sex: Female

DRUGS (1)
  1. FOLLISTIM AQ CARTRIDGE [Suspect]
     Dosage: UNK, 200 IU FORM 600 IU CARTRIDGE

REACTIONS (2)
  - Cyst [Unknown]
  - Ovarian hyperstimulation syndrome [Unknown]
